FAERS Safety Report 4369446-4 (Version None)
Quarter: 2004Q2

REPORT INFORMATION
  Report Type: 
  Country: None (occurrence: None)
  Receive Date: 20040527
  Receipt Date: 20040506
  Transmission Date: 20050107
  Serious: Yes (Hospitalization, Other)
  Sender: FDA-Public Use
  Company Number: US_030494105

PATIENT
  Sex: Female
  Weight: 90 kg

DRUGS (6)
  1. HUMALOG [Suspect]
     Indication: DIABETES MELLITUS
     Dates: start: 19990101
  2. HUMULIN R [Suspect]
     Indication: DIABETES MELLITUS
     Dosage: 38 U DAY
     Dates: start: 19990101
  3. HUMULIN N [Suspect]
     Indication: DIABETES MELLITUS
     Dosage: 20 U/1 IN THE EVENING
     Dates: start: 19990101
  4. ILETIN [Suspect]
     Indication: DIABETES MELLITUS
     Dates: start: 19820702, end: 19990101
  5. NPH ILETIN I (BEEF-PORK) [Suspect]
     Indication: DIABETES MELLITUS
     Dates: start: 19820702, end: 19990101
  6. INSULIN [Suspect]
     Indication: DIABETES MELLITUS
     Dates: start: 19820702

REACTIONS (28)
  - ACIDOSIS [None]
  - ANKLE FRACTURE [None]
  - ASTHMA [None]
  - BLOOD GLUCOSE INCREASED [None]
  - DERMATITIS ALLERGIC [None]
  - DIABETES MELLITUS INADEQUATE CONTROL [None]
  - DIABETES MELLITUS INSULIN-DEPENDENT [None]
  - DRUG HYPERSENSITIVITY [None]
  - EYE HAEMORRHAGE [None]
  - FALL [None]
  - FOOT FRACTURE [None]
  - GLAUCOMA [None]
  - INJECTION SITE REACTION [None]
  - INSULIN RESISTANCE [None]
  - JOINT DISLOCATION [None]
  - LEG CRUSHING [None]
  - LOCAL REACTION [None]
  - LOSS OF CONSCIOUSNESS [None]
  - LOWER LIMB FRACTURE [None]
  - NEUROPATHY PERIPHERAL [None]
  - RETINOPATHY [None]
  - ROAD TRAFFIC ACCIDENT [None]
  - SCAR [None]
  - SHOCK HYPOGLYCAEMIC [None]
  - SKIN ULCER [None]
  - URTICARIA [None]
  - VISUAL ACUITY REDUCED [None]
  - WEIGHT INCREASED [None]
